FAERS Safety Report 18077081 (Version 2)
Quarter: 2020Q3

REPORT INFORMATION
  Report Type: Report from Study
  Country: US (occurrence: US)
  Receive Date: 20200727
  Receipt Date: 20200806
  Transmission Date: 20201103
  Serious: Yes (Hospitalization)
  Sender: FDA-Public Use
  Company Number: US-ACTELION-A-NJ2020-207440

PATIENT
  Sex: Male
  Weight: 34.92 kg

DRUGS (3)
  1. ADCIRCA [Concomitant]
     Active Substance: TADALAFIL
  2. UPTRAVI [Suspect]
     Active Substance: SELEXIPAG
     Indication: PULMONARY ARTERIAL HYPERTENSION
     Dosage: 600 MCG, BID
     Route: 048
  3. AMBRISENTAN [Concomitant]
     Active Substance: AMBRISENTAN

REACTIONS (3)
  - Dehydration [Unknown]
  - Blood electrolytes abnormal [Unknown]
  - Respiratory tract infection [Unknown]
